FAERS Safety Report 4994200-X (Version None)
Quarter: 2006Q1

REPORT INFORMATION
  Report Type: 
  Country: None (occurrence: None)
  Receive Date: 20060313
  Receipt Date: 20051006
  Transmission Date: 20060701
  Serious: Yes (Hospitalization)
  Sender: FDA-Public Use
  Company Number: PHEH2005US10069

PATIENT
  Age: 51 Year
  Sex: Female

DRUGS (4)
  1. TRILEPTAL [Suspect]
     Indication: EPILEPSY
     Dosage: 600 MG,BID
  2. PRIMIDONE [Concomitant]
  3. LEVOTHYROXINE SODIUM [Concomitant]
  4. DITROPAN XL [Concomitant]

REACTIONS (5)
  - ABDOMINAL DISTENSION [None]
  - CONVULSION [None]
  - HEADACHE [None]
  - SOMNOLENCE [None]
  - WEIGHT INCREASED [None]
